FAERS Safety Report 15720645 (Version 1)
Quarter: 2018Q4

REPORT INFORMATION
  Report Type: Other
  Country: IL (occurrence: NL)
  Receive Date: 20181213
  Receipt Date: 20181213
  Transmission Date: 20190205
  Serious: Yes (Death)
  Sender: FDA-Public Use
  Company Number: IL-LEADIANT BIOSCIENCES INC-2018STPI000749

PATIENT
  Age: 36 Year
  Sex: Male

DRUGS (2)
  1. ABELCET [Suspect]
     Active Substance: AMPHOTERICIN B\DIMYRISTOYLPHOSPHATIDYLCHOLINE, DL-\DIMYRISTOYLPHOSPHATIDYLGLYCEROL, DL-
     Indication: MUCORMYCOSIS
     Dosage: 375 MG, QD
     Route: 042
     Dates: start: 20070925
  2. VALACYCLOVIR                       /01269701/ [Concomitant]
     Active Substance: VALACYCLOVIR HYDROCHLORIDE
     Dosage: 900 MG, BID
     Route: 048

REACTIONS (2)
  - Ventricular fibrillation [Fatal]
  - Hyperkalaemia [Fatal]

NARRATIVE: CASE EVENT DATE: 20071005
